FAERS Safety Report 4304601-0 (Version None)
Quarter: 2004Q1

REPORT INFORMATION
  Report Type: 
  Country: None (occurrence: None)
  Receive Date: 20040224
  Receipt Date: 20040209
  Transmission Date: 20041129
  Serious: Yes (Death)
  Sender: FDA-Public Use
  Company Number: M04-INT-022

PATIENT
  Age: 77 Year
  Sex: Female
  Weight: 68 kg

DRUGS (4)
  1. INTEGRILIN [Suspect]
     Indication: CORONARY ANGIOPLASTY
     Dosage: 2200 MG QD: INTRAVENOUS (NOT OTHERWISE SPECIFIED)
     Dates: start: 20030812, end: 20030812
  2. ACETYLSALICYLIC ACID SRT [Suspect]
     Indication: CORONARY ANGIOPLASTY
     Dosage: 300 MG QD: ORAL
     Route: 048
     Dates: start: 20030812, end: 20030812
  3. CLOPIDOGREL BISULFATE [Suspect]
     Indication: CORONARY ANGIOPLASTY
     Dosage: 75 MG QD: ORAL
     Route: 048
     Dates: start: 20030812, end: 20030812
  4. HEPARIN [Suspect]
     Indication: CORONARY ANGIOPLASTY
     Dosage: 15,000 IU: INTRAVENOUS (NOT OTHERWISE SPECIFIED)
     Dates: start: 20030812, end: 20030812

REACTIONS (5)
  - CATHETER SITE HAEMORRHAGE [None]
  - CHILLS [None]
  - POST PROCEDURAL COMPLICATION [None]
  - SHOCK HAEMORRHAGIC [None]
  - THROMBOCYTOPENIA [None]
